FAERS Safety Report 9748275 (Version 1)
Quarter: 2013Q4

REPORT INFORMATION
  Report Type: Spontaneous
  Country: US (occurrence: None)
  Receive Date: 20131211
  Receipt Date: 20131211
  Transmission Date: 20140711
  Serious: No
  Sender: FDA-Public Use
  Company Number: None

PATIENT
  Age: 9 Year
  Sex: Male

DRUGS (1)
  1. WAL-ZYR [Suspect]
     Indication: MULTIPLE ALLERGIES
     Dosage: 5ML(5MG) QD, PO
     Route: 048
     Dates: start: 20131209

REACTIONS (3)
  - Abdominal discomfort [None]
  - Diarrhoea [None]
  - Oral discomfort [None]
